FAERS Safety Report 21723141 (Version 1)
Quarter: 2022Q4

REPORT INFORMATION
  Report Type: Spontaneous
  Country: US (occurrence: None)
  Receive Date: 20221212
  Receipt Date: 20221212
  Transmission Date: 20230113
  Serious: Yes (Other)
  Sender: FDA-Public Use
  Company Number: None

PATIENT
  Age: 61 Year
  Sex: Female
  Weight: 74.25 kg

DRUGS (16)
  1. RALOXIFENE [Suspect]
     Active Substance: RALOXIFENE
     Indication: Osteoporosis
     Dosage: OTHER QUANTITY : 1 TABLET(S);?FREQUENCY : DAILY;?
     Route: 048
  2. SIMVASTATIN [Concomitant]
     Active Substance: SIMVASTATIN
  3. RALOXIFENE [Concomitant]
     Active Substance: RALOXIFENE
  4. DYAZIDE [Concomitant]
     Active Substance: HYDROCHLOROTHIAZIDE\TRIAMTERENE
  5. KLONOPIN [Concomitant]
  6. ACTONEL [Concomitant]
     Active Substance: RISEDRONATE SODIUM
  7. ROBAXIN [Concomitant]
  8. VIT B WITH C [Concomitant]
  9. MTV [Concomitant]
  10. CALCIUM CARBONATE [Concomitant]
     Active Substance: CALCIUM CARBONATE
  11. FISH OIL [Concomitant]
     Active Substance: FISH OIL
  12. VITAMIN D [Concomitant]
     Active Substance: VITAMIN D NOS
  13. ASPIRIN [Concomitant]
     Active Substance: ASPIRIN
  14. FLOSNASE PRN [Concomitant]
  15. HERBALS [Concomitant]
     Active Substance: HERBALS
  16. RALOXIFENE [Suspect]
     Active Substance: RALOXIFENE
     Indication: Invasive breast carcinoma

REACTIONS (1)
  - Macular hole [None]

NARRATIVE: CASE EVENT DATE: 20220905
